FAERS Safety Report 6694932-1 (Version None)
Quarter: 2010Q2

REPORT INFORMATION
  Report Type: 
  Country: None (occurrence: None)
  Receive Date: 20100423
  Receipt Date: 20100412
  Transmission Date: 20101027
  Serious: Yes (Hospitalization)
  Sender: FDA-Public Use
  Company Number: NO-ELI_LILLY_AND_COMPANY-NO201004003433

PATIENT
  Age: 40 Year
  Sex: Male

DRUGS (2)
  1. ZYPADHERA [Suspect]
     Indication: SCHIZOPHRENIA
     Dosage: 300 MG, MONTHLY (1/M)
     Route: 030
     Dates: start: 20090101
  2. ZYPADHERA [Suspect]
     Dosage: 300 MG, MONTHLY (1/M)
     Route: 030
     Dates: start: 20100224, end: 20100101

REACTIONS (4)
  - CONFUSIONAL STATE [None]
  - HYPOTENSION [None]
  - SEDATION [None]
  - SPEECH DISORDER [None]
